FAERS Safety Report 5665047-6 (Version None)
Quarter: 2008Q1

REPORT INFORMATION
  Report Type: 
  Country: None (occurrence: None)
  Receive Date: 20080314
  Receipt Date: 20080305
  Transmission Date: 20080703
  Serious: Yes (Other)
  Sender: FDA-Public Use
  Company Number: US-PFIZER INC-2008021031

PATIENT
  Sex: Male
  Weight: 74.8 kg

DRUGS (3)
  1. LIPITOR [Suspect]
     Dosage: DAILY DOSE:20MG
  2. LISINOPRIL [Concomitant]
     Dosage: DAILY DOSE:10MG
  3. CELEBREX [Concomitant]
     Dosage: DAILY DOSE:200MG

REACTIONS (5)
  - BLOOD TRIGLYCERIDES DECREASED [None]
  - MUSCLE ATROPHY [None]
  - MUSCLE SPASMS [None]
  - MUSCULOSKELETAL DISCOMFORT [None]
  - WEIGHT DECREASED [None]
